FAERS Safety Report 18085778 (Version 1)
Quarter: 2020Q3

REPORT INFORMATION
  Report Type: Spontaneous
  Country: BR (occurrence: BR)
  Receive Date: 20200728
  Receipt Date: 20200728
  Transmission Date: 20201103
  Serious: Yes (Hospitalization, Disabling, Other)
  Sender: FDA-Public Use
  Company Number: BR-009507513-2007BRA003209

PATIENT
  Sex: Male
  Weight: 65 kg

DRUGS (6)
  1. TAXOL [Suspect]
     Active Substance: PACLITAXEL
     Indication: LUNG NEOPLASM MALIGNANT
     Dosage: 4 CHEMOTHERAPY SESSIONS
     Dates: start: 2019, end: 2019
  2. KEYTRUDA [Suspect]
     Active Substance: PEMBROLIZUMAB
     Indication: LUNG NEOPLASM MALIGNANT
     Dosage: ALONG WITH CHEMOTHERAPY
     Dates: start: 2019, end: 2019
  3. KEYTRUDA [Suspect]
     Active Substance: PEMBROLIZUMAB
     Indication: IMMUNOCHEMOTHERAPY
     Dosage: MONOTHERAPY EVERY 21 DAYS
     Dates: start: 20190703, end: 202005
  4. CARBOPLATIN. [Suspect]
     Active Substance: CARBOPLATIN
     Indication: IMMUNOCHEMOTHERAPY
  5. TAXOL [Suspect]
     Active Substance: PACLITAXEL
     Indication: IMMUNOCHEMOTHERAPY
  6. CARBOPLATIN. [Suspect]
     Active Substance: CARBOPLATIN
     Indication: LUNG NEOPLASM MALIGNANT
     Dosage: 4 CHEMOTHERAPY SESSIONS
     Dates: start: 2019, end: 2019

REACTIONS (5)
  - Dyspnoea [Recovered/Resolved]
  - Asthenia [Unknown]
  - Dysstasia [Not Recovered/Not Resolved]
  - Gait inability [Not Recovered/Not Resolved]
  - Malignant neoplasm progression [Not Recovered/Not Resolved]

NARRATIVE: CASE EVENT DATE: 20200616
